FAERS Safety Report 9687492 (Version 1)
Quarter: 2013Q4

REPORT INFORMATION
  Report Type: Spontaneous
  Country: US (occurrence: US)
  Receive Date: 20131114
  Receipt Date: 20131114
  Transmission Date: 20140711
  Serious: No
  Sender: FDA-Public Use
  Company Number: US-009507513-1311USA004309

PATIENT
  Age: 47 Year
  Sex: Male

DRUGS (3)
  1. NOXAFIL [Suspect]
     Indication: ASPERGILLUS INFECTION
     Dosage: 400 MG, BID
     Route: 048
     Dates: start: 201310
  2. NOXAFIL [Suspect]
     Dosage: 450 MG, BID
     Route: 048
  3. NOXAFIL [Suspect]
     Dosage: 300 MG, TID
     Route: 048
     Dates: start: 201310

REACTIONS (3)
  - Drug level below therapeutic [Not Recovered/Not Resolved]
  - Inappropriate schedule of drug administration [Unknown]
  - Overdose [Unknown]
